FAERS Safety Report 8265254-2 (Version None)
Quarter: 2012Q2

REPORT INFORMATION
  Report Type: 
  Country: None (occurrence: None)
  Receive Date: 20120406
  Receipt Date: 20120327
  Transmission Date: 20120825
  Serious: Yes (Hospitalization)
  Sender: FDA-Public Use
  Company Number: FR-ELI_LILLY_AND_COMPANY-FR201112007770

PATIENT
  Sex: Male
  Weight: 85 kg

DRUGS (8)
  1. HYPERIUM [Concomitant]
  2. PERINDOPRIL ERBUMINE [Concomitant]
  3. FORTEO [Suspect]
     Indication: OSTEOPOROSIS
     Dosage: 20 UG, QD
     Route: 058
     Dates: start: 20110426
  4. ATORVASTATIN [Concomitant]
  5. ASPIRIN [Concomitant]
  6. NEBIVOLOL HCL [Concomitant]
  7. NICARDIPINE HYDROCHLORIDE [Concomitant]
  8. POTASSIUM CHLORIDE [Concomitant]

REACTIONS (5)
  - WRIST FRACTURE [None]
  - RADIUS FRACTURE [None]
  - ANKLE FRACTURE [None]
  - FALL [None]
  - JOINT INJURY [None]
